FAERS Safety Report 20327706 (Version 2)
Quarter: 2022Q2

REPORT INFORMATION
  Report Type: Spontaneous
  Country: SE (occurrence: SE)
  Receive Date: 20220112
  Receipt Date: 20220526
  Transmission Date: 20220721
  Serious: Yes (Life-Threatening, Other)
  Sender: FDA-Public Use
  Company Number: None

PATIENT
  Age: 53 Year
  Sex: Male

DRUGS (3)
  1. AUBAGIO [Suspect]
     Active Substance: TERIFLUNOMIDE
     Indication: Multiple sclerosis
     Dosage: 14 MG, QD
     Route: 048
     Dates: start: 20141205
  2. COMIRNATY [Suspect]
     Active Substance: TOZINAMERAN
     Dosage: DOSE II
     Dates: start: 20210221, end: 20210221
  3. COVID-19 VACCINE [Concomitant]
     Indication: Immunisation
     Dosage: UNK

REACTIONS (3)
  - Cerebral haemorrhage [Recovered/Resolved with Sequelae]
  - Cerebral haemorrhage [Unknown]
  - Optic neuritis [Unknown]

NARRATIVE: CASE EVENT DATE: 20210227
